FAERS Safety Report 18334453 (Version 6)
Quarter: 2024Q1

REPORT INFORMATION
  Report Type: Other
  Country: CA (occurrence: None)
  Receive Date: 20201001
  Receipt Date: 20240322
  Transmission Date: 20240409
  Serious: Yes (Other)
  Sender: FDA-Public Use
  Company Number: CA-ROCHE-2685754

PATIENT

DRUGS (7)
  1. BEVACIZUMAB [Suspect]
     Active Substance: BEVACIZUMAB
     Indication: Ovarian cancer
     Route: 042
  2. MIRVETUXIMAB SORAVTANSINE [Suspect]
     Active Substance: MIRVETUXIMAB SORAVTANSINE
     Indication: Ovarian cancer
     Route: 042
  3. CARBOPLATIN [Suspect]
     Active Substance: CARBOPLATIN
     Indication: Ovarian cancer
     Dosage: AUC5
     Route: 042
  4. ACETAMINOPHEN [Concomitant]
     Active Substance: ACETAMINOPHEN
  5. DEXAMETHASONE [Concomitant]
     Active Substance: DEXAMETHASONE
  6. DIPHENHYDRAMINE [Concomitant]
     Active Substance: DIPHENHYDRAMINE
  7. PREDNISOLONE [Concomitant]
     Active Substance: PREDNISOLONE
     Dosage: 6 TIMES DAILY ON DAYS 1 THROUGH 4 AND 4 TIMES DAILY ON DAYS 5 THROUGH 8 OF EACH CYCLE

REACTIONS (40)
  - Diarrhoea [Unknown]
  - Small intestinal obstruction [Unknown]
  - Small intestinal perforation [Unknown]
  - Large intestine perforation [Unknown]
  - Colonic fistula [Unknown]
  - Pneumonitis [Unknown]
  - Headache [Unknown]
  - Enteritis [Unknown]
  - Anaemia [Unknown]
  - Hip fracture [Unknown]
  - Nausea [Unknown]
  - Vision blurred [Unknown]
  - Fatigue [Unknown]
  - Hypertension [Unknown]
  - Neutropenia [Unknown]
  - Thrombocytopenia [Unknown]
  - Dry eye [Unknown]
  - Aspartate aminotransferase increased [Unknown]
  - Alanine aminotransferase increased [Unknown]
  - Epistaxis [Unknown]
  - Vomiting [Unknown]
  - Neuropathy peripheral [Unknown]
  - Gastrointestinal haemorrhage [Unknown]
  - Weight decreased [Unknown]
  - Keratopathy [Unknown]
  - Decreased appetite [Unknown]
  - Abdominal pain [Unknown]
  - Constipation [Unknown]
  - Myalgia [Unknown]
  - Infusion related reaction [Unknown]
  - Alopecia [Unknown]
  - Ascites [Unknown]
  - Haematemesis [Unknown]
  - Varices oesophageal [Unknown]
  - Dyspnoea [Unknown]
  - Hypoxia [Unknown]
  - Interstitial lung disease [Unknown]
  - Hyperbilirubinaemia [Unknown]
  - Hypoalbuminaemia [Unknown]
  - Blood alkaline phosphatase increased [Unknown]
